FAERS Safety Report 4263116-9 (Version None)
Quarter: 2004Q1

REPORT INFORMATION
  Report Type: 
  Country: None (occurrence: None)
  Receive Date: 20040102
  Receipt Date: 20040102
  Transmission Date: 20041129
  Serious: Yes (Death)
  Sender: FDA-Public Use
  Company Number: None

PATIENT
  Sex: Male
  Weight: 55.8 kg

DRUGS (3)
  1. CPT 11 (IRINOTECAN) [Suspect]
     Indication: GASTRIC CANCER
     Dosage: IRINOTECAN IV 115 MG /M2
     Route: 042
     Dates: start: 20031204, end: 20031204
  2. XELODA [Suspect]
     Dosage: CAPECITABINE 2000MG/M2 PO
     Route: 048
     Dates: start: 20031204, end: 20031209
  3. XELODA [Suspect]

REACTIONS (17)
  - ACIDOSIS [None]
  - BLOOD PRESSURE DECREASED [None]
  - DEHYDRATION [None]
  - DIFFUSE ALVEOLAR DAMAGE [None]
  - DYSPNOEA [None]
  - GASTRIC CANCER [None]
  - HEART RATE INCREASED [None]
  - KLEBSIELLA INFECTION [None]
  - MALIGNANT NEOPLASM PROGRESSION [None]
  - MUCOSAL INFLAMMATION [None]
  - NAUSEA [None]
  - NEUTROPENIA [None]
  - OXYGEN SATURATION DECREASED [None]
  - SEPTIC SHOCK [None]
  - SUPRAVENTRICULAR TACHYCARDIA [None]
  - VENTRICULAR ASYSTOLE [None]
  - VOMITING [None]
